FAERS Safety Report 10190457 (Version 2)
Quarter: 2014Q2

REPORT INFORMATION
  Report Type: Report from Study
  Country: US (occurrence: US)
  Receive Date: 20140522
  Receipt Date: 20140624
  Transmission Date: 20141212
  Serious: Yes (Other)
  Sender: FDA-Public Use
  Company Number: US-BRISTOL-MYERS SQUIBB COMPANY-20734422

PATIENT
  Age: 68 Year
  Sex: Male
  Weight: 130 kg

DRUGS (1)
  1. IPILIMUMAB [Suspect]
     Indication: MALIGNANT MELANOMA
     Dosage: TOTAL DOSE-408.5MG?LAST ADMIN DOSE ON 03APR2014.
     Route: 042
     Dates: start: 20140130

REACTIONS (2)
  - Abdominal pain [Recovering/Resolving]
  - Mesenteric panniculitis [Recovering/Resolving]
